FAERS Safety Report 4922630-0 (Version None)
Quarter: 2006Q1

REPORT INFORMATION
  Report Type: 
  Country: None (occurrence: None)
  Receive Date: 20060224
  Receipt Date: 20060215
  Transmission Date: 20060701
  Serious: Yes (Other)
  Sender: FDA-Public Use
  Company Number: US-BRISTOL-MYERS SQUIBB COMPANY-13285143

PATIENT
  Age: 19 Year
  Sex: Female

DRUGS (3)
  1. ABILIFY [Suspect]
     Indication: SCHIZOPHRENIA
     Dosage: INITIATED AT 5 MG/D; INCREASED TO 15 MG W/IN 1 MONTH; ON 14-FEB-2006 DOSE REDUCED TO 10 MG/D.
     Route: 048
     Dates: start: 20051001
  2. CLOZARIL [Concomitant]
  3. CONTRACEPTIVE [Concomitant]

REACTIONS (2)
  - COGWHEEL RIGIDITY [None]
  - OCULOGYRATION [None]
